FAERS Safety Report 12209317 (Version 3)
Quarter: 2016Q3

REPORT INFORMATION
  Report Type: Spontaneous
  Country: US (occurrence: US)
  Receive Date: 20160324
  Receipt Date: 20160927
  Transmission Date: 20161109
  Serious: Yes (Life-Threatening, Other)
  Sender: FDA-Public Use
  Company Number: US-ACTELION-A-US2016-133495

PATIENT
  Age: 24 Year
  Sex: Female

DRUGS (6)
  1. VELETRI [Suspect]
     Active Substance: EPOPROSTENOL
     Indication: PULMONARY ARTERIAL HYPERTENSION
     Dosage: 2.5 NG/KG, PER MIN
     Route: 042
     Dates: start: 20160125, end: 20160310
  2. ADCIRCA [Concomitant]
     Active Substance: TADALAFIL
  3. FLUTICASONE [Concomitant]
     Active Substance: FLUTICASONE\FLUTICASONE PROPIONATE
  4. FUROSEMIDE. [Concomitant]
     Active Substance: FUROSEMIDE
     Dosage: UNK
     Dates: start: 20160112, end: 20160531
  5. ALBUTEROL. [Concomitant]
     Active Substance: ALBUTEROL
  6. UPTRAVI [Suspect]
     Active Substance: SELEXIPAG
     Indication: PULMONARY ARTERIAL HYPERTENSION
     Dosage: UNK
     Route: 048
     Dates: start: 20160408, end: 20160531

REACTIONS (5)
  - Caesarean section [Unknown]
  - Premature delivery [Unknown]
  - Pregnancy [Recovered/Resolved]
  - Headache [Unknown]
  - Device occlusion [Unknown]

NARRATIVE: CASE EVENT DATE: 20160531
